FAERS Safety Report 6396839-6 (Version None)
Quarter: 2009Q4

REPORT INFORMATION
  Report Type: 
  Country: None (occurrence: None)
  Receive Date: 20091012
  Receipt Date: 20090721
  Transmission Date: 20100525
  Serious: No
  Sender: FDA-Public Use
  Company Number: US-ASTRAZENECA-2009UW20906

PATIENT
  Age: 75 Year
  Sex: Female
  Weight: 68.5 kg

DRUGS (1)
  1. SYMBICORT [Suspect]
     Route: 055

REACTIONS (6)
  - AGEUSIA [None]
  - ANOSMIA [None]
  - ASTHMA [None]
  - DECREASED APPETITE [None]
  - DYSPHONIA [None]
  - WEIGHT DECREASED [None]
